FAERS Safety Report 7763284-8 (Version None)
Quarter: 2011Q3

REPORT INFORMATION
  Report Type: 
  Country: None (occurrence: None)
  Receive Date: 20110920
  Receipt Date: 20110913
  Transmission Date: 20111222
  Serious: Yes (Congenital Anomaly)
  Sender: FDA-Public Use
  Company Number: NL-ASTRAZENECA-2011SE01061

PATIENT
  Age: 0 Year
  Sex: Male
  Weight: 4 kg

DRUGS (2)
  1. SEROQUEL XR [Suspect]
     Indication: ANXIETY DISORDER
     Route: 064
     Dates: start: 20060301
  2. FOLIC ACID [Concomitant]

REACTIONS (1)
  - HYPOSPADIAS [None]
